FAERS Safety Report 8606745 (Version 4)
Quarter: 2014Q1

REPORT INFORMATION
  Report Type: Spontaneous
  Country: US (occurrence: US)
  Receive Date: 20120611
  Receipt Date: 20140123
  Transmission Date: 20141002
  Serious: Yes (Disabling)
  Sender: FDA-Public Use
  Company Number: US-ASTRAZENECA-2012SE34794

PATIENT
  Age: 41 Year
  Sex: Male

DRUGS (18)
  1. NEXIUM [Suspect]
     Indication: GASTROOESOPHAGEAL REFLUX DISEASE
     Route: 048
     Dates: start: 2001
  2. NEXIUM [Suspect]
     Indication: GASTROOESOPHAGEAL REFLUX DISEASE
     Route: 048
     Dates: start: 20010323
  3. NEXIUM [Suspect]
     Indication: GASTROOESOPHAGEAL REFLUX DISEASE
     Route: 048
     Dates: start: 20070627
  4. PREVACID [Concomitant]
  5. TUMS OTC [Concomitant]
  6. PEPTO BISMOL OTC [Concomitant]
  7. ROLAIDS [Concomitant]
  8. FISH OIL [Concomitant]
  9. NEUROTON [Concomitant]
  10. CYMBALTA [Concomitant]
  11. METHADONE [Concomitant]
  12. MOBIC [Concomitant]
  13. LORATAB [Concomitant]
  14. GABAPENTIN [Concomitant]
  15. RELPAX [Concomitant]
  16. FENTANYL [Concomitant]
  17. ALBUTEROL [Concomitant]
  18. OXYCODONE [Concomitant]

REACTIONS (8)
  - Back disorder [Unknown]
  - Osteoporosis [Unknown]
  - Multiple fractures [Unknown]
  - Rib fracture [Unknown]
  - Foot fracture [Unknown]
  - Tooth disorder [Unknown]
  - Hiatus hernia [Unknown]
  - Osteopenia [Unknown]
